FAERS Safety Report 16575531 (Version 1)
Quarter: 2019Q3

REPORT INFORMATION
  Report Type: Spontaneous
  Country: GB (occurrence: GB)
  Receive Date: 20190716
  Receipt Date: 20190716
  Transmission Date: 20191004
  Serious: Yes (Other)
  Sender: FDA-Public Use
  Company Number: GB-TEVA-2019-GB-1077762

PATIENT
  Age: 19 Year
  Sex: Male

DRUGS (1)
  1. DAPSONE. [Suspect]
     Active Substance: DAPSONE
     Indication: INTENTIONAL OVERDOSE
     Dosage: 5.6 GRAM DAILY;
     Route: 065

REACTIONS (4)
  - Agitation [Recovered/Resolved]
  - Intentional overdose [Recovered/Resolved]
  - Haemolysis [Recovered/Resolved]
  - Tachycardia [Recovered/Resolved]
